FAERS Safety Report 4536991-8 (Version None)
Quarter: 2004Q4

REPORT INFORMATION
  Report Type: 
  Country: None (occurrence: None)
  Receive Date: 20041220
  Receipt Date: 20041209
  Transmission Date: 20050328
  Serious: Yes (Hospitalization)
  Sender: FDA-Public Use
  Company Number: HQWYE490717NOV04

PATIENT
  Age: 82 Year
  Sex: Female

DRUGS (3)
  1. RHEUMATREX [Suspect]
     Indication: RHEUMATOID ARTHRITIS
     Dosage: 6 MG 1X PER 1 WK ORAL
     Route: 048
  2. VOLTAREN [Concomitant]
  3. BONALON (ALENDRONATE SODIUM) [Concomitant]

REACTIONS (5)
  - BONE MARROW DEPRESSION [None]
  - PLEURAL EFFUSION [None]
  - PNEUMONIA [None]
  - SEPTIC SHOCK [None]
  - STOMATITIS [None]
